FAERS Safety Report 11953748 (Version 2)
Quarter: 2016Q2

REPORT INFORMATION
  Report Type: Spontaneous
  Country: US (occurrence: US)
  Receive Date: 20160126
  Receipt Date: 20160406
  Transmission Date: 20160815
  Serious: Yes (Hospitalization, Other)
  Sender: FDA-Public Use
  Company Number: US-ELI_LILLY_AND_COMPANY-US201601008948

PATIENT
  Age: 57 Year
  Sex: Male
  Weight: 91 kg

DRUGS (18)
  1. DEPO TESTOSTERONE [Suspect]
     Active Substance: TESTOSTERONE
     Dosage: UNK, MONTHLY (1/M)
     Route: 065
     Dates: start: 20130625
  2. DEPO TESTOSTERONE [Suspect]
     Active Substance: TESTOSTERONE
     Dosage: UNK, MONTHLY (1/M)
     Route: 065
     Dates: start: 20130801
  3. DEPO TESTOSTERONE [Suspect]
     Active Substance: TESTOSTERONE
     Dosage: UNK, MONTHLY (1/M)
     Route: 065
     Dates: start: 20130909
  4. HCTZ [Concomitant]
     Active Substance: HYDROCHLOROTHIAZIDE
     Indication: BLOOD PRESSURE ABNORMAL
     Dosage: UNK
     Route: 065
     Dates: start: 2000
  5. ASPIRIN                            /00002701/ [Concomitant]
     Active Substance: ASPIRIN
     Indication: CARDIOVASCULAR EVENT PROPHYLAXIS
     Dosage: UNK
     Route: 065
     Dates: start: 2014
  6. DEPO TESTOSTERONE [Suspect]
     Active Substance: TESTOSTERONE
     Dosage: UNK, MONTHLY (1/M)
     Route: 065
     Dates: start: 20140220
  7. AXIRON [Suspect]
     Active Substance: TESTOSTERONE
     Indication: BLOOD TESTOSTERONE DECREASED
     Dosage: UNK, UNKNOWN
     Route: 065
     Dates: start: 20120308
  8. DEPO TESTOSTERONE [Suspect]
     Active Substance: TESTOSTERONE
     Dosage: UNK, UNKNOWN
     Route: 065
     Dates: start: 20130513
  9. DEPO TESTOSTERONE [Suspect]
     Active Substance: TESTOSTERONE
     Dosage: UNK, MONTHLY (1/M)
     Route: 065
     Dates: start: 20131010
  10. COQ 10 [Concomitant]
     Active Substance: UBIDECARENONE
     Indication: CARDIOVASCULAR EVENT PROPHYLAXIS
     Dosage: UNK
     Route: 065
     Dates: start: 2014
  11. POTASSIUM [Concomitant]
     Active Substance: POTASSIUM
     Indication: PRODUCT USED FOR UNKNOWN INDICATION
     Dosage: UNK
     Route: 065
     Dates: start: 2014
  12. AXIRON [Suspect]
     Active Substance: TESTOSTERONE
     Dosage: UNK, UNKNOWN
     Route: 065
     Dates: start: 20120517
  13. DEPO TESTOSTERONE [Suspect]
     Active Substance: TESTOSTERONE
     Dosage: UNK, MONTHLY (1/M)
     Route: 065
     Dates: start: 20140114
  14. DEPO TESTOSTERONE [Suspect]
     Active Substance: TESTOSTERONE
     Indication: BLOOD TESTOSTERONE DECREASED
     Dosage: UNK, UNKNOWN
     Route: 065
     Dates: start: 20130408
  15. DEPO TESTOSTERONE [Suspect]
     Active Substance: TESTOSTERONE
     Dosage: UNK, MONTHLY (1/M)
     Route: 065
     Dates: start: 20131118
  16. FISH OIL [Concomitant]
     Active Substance: FISH OIL
     Indication: CARDIOVASCULAR EVENT PROPHYLAXIS
     Dosage: UNK
     Dates: start: 2010
  17. LOSARTAN. [Concomitant]
     Active Substance: LOSARTAN
     Indication: BLOOD PRESSURE ABNORMAL
     Dosage: UNK
     Route: 065
     Dates: start: 2014
  18. ASPIRIN                            /00002701/ [Concomitant]
     Active Substance: ASPIRIN
     Indication: CHEST PAIN
     Dosage: 325 MG, UNK
     Route: 065

REACTIONS (2)
  - Acute myocardial infarction [Recovered/Resolved]
  - Coronary artery disease [Unknown]

NARRATIVE: CASE EVENT DATE: 20140126
